FAERS Safety Report 4411849-3 (Version None)
Quarter: 2004Q3

REPORT INFORMATION
  Report Type: 
  Country: None (occurrence: None)
  Receive Date: 20040729
  Receipt Date: 20040729
  Transmission Date: 20050211
  Serious: No
  Sender: FDA-Public Use
  Company Number: None

PATIENT
  Sex: Male

DRUGS (1)
  1. OXALIPLATIN [Suspect]
     Dosage: 154 MG

REACTIONS (3)
  - ERYTHEMA [None]
  - RASH [None]
  - SWELLING FACE [None]
